FAERS Safety Report 15345420 (Version 1)
Quarter: 2018Q3

REPORT INFORMATION
  Report Type: Spontaneous
  Country: US (occurrence: US)
  Receive Date: 20180903
  Receipt Date: 20180903
  Transmission Date: 20181010
  Serious: Yes (Hospitalization)
  Sender: FDA-Public Use
  Company Number: US-SHIRE-US201833495

PATIENT
  Age: 71 Year
  Sex: Female

DRUGS (1)
  1. GATTEX [Suspect]
     Active Substance: TEDUGLUTIDE\WATER
     Indication: SHORT-BOWEL SYNDROME
     Dosage: 0.1100 UNKNOWN UNITS, DAILY
     Route: 065
     Dates: start: 20180626

REACTIONS (4)
  - Blood sodium decreased [Unknown]
  - Renal disorder [Recovered/Resolved]
  - Catheter site injury [Unknown]
  - Dehydration [Unknown]

NARRATIVE: CASE EVENT DATE: 20180706
